FAERS Safety Report 5780112-0 (Version None)
Quarter: 2008Q2

REPORT INFORMATION
  Report Type: 
  Country: None (occurrence: None)
  Receive Date: 20080620
  Receipt Date: 20080612
  Transmission Date: 20081010
  Serious: Yes (Other)
  Sender: FDA-Public Use
  Company Number: GB-TEVA-172969ISR

PATIENT
  Age: 33 Year
  Sex: Female
  Weight: 60 kg

DRUGS (1)
  1. CITALOPRAM [Suspect]
     Indication: POSTPARTUM DEPRESSION
     Route: 048
     Dates: start: 20080207, end: 20080401

REACTIONS (2)
  - COUGH [None]
  - HAEMOPTYSIS [None]
